FAERS Safety Report 21423738 (Version 1)
Quarter: 2022Q4

REPORT INFORMATION
  Report Type: Spontaneous
  Country: US (occurrence: US)
  Receive Date: 20221007
  Receipt Date: 20221007
  Transmission Date: 20230113
  Serious: Yes (Hospitalization, Other)
  Sender: FDA-Public Use
  Company Number: US-MYLANLABS-2022M1111090

PATIENT
  Age: 8 Year
  Sex: Male

DRUGS (21)
  1. IFOSFAMIDE [Suspect]
     Active Substance: IFOSFAMIDE
     Indication: Malignant central nervous system neoplasm
     Dosage: UNK, ICE REGIMEN; ONE CYCLE
     Route: 065
  2. CARBOPLATIN [Suspect]
     Active Substance: CARBOPLATIN
     Indication: Malignant central nervous system neoplasm
     Dosage: UNK, ICE REGIMEN; ONE CYCLE
     Route: 065
  3. CARBOPLATIN [Suspect]
     Active Substance: CARBOPLATIN
     Dosage: UNK, CYCLE,CONSOLIDATION THERAPY
     Route: 065
  4. ETOPOSIDE [Suspect]
     Active Substance: ETOPOSIDE
     Indication: Malignant central nervous system neoplasm
     Dosage: UNK, ICE REGIMEN; ONE CYCLE
     Route: 065
  5. ETOPOSIDE [Suspect]
     Active Substance: ETOPOSIDE
     Dosage: UNK, CYCLE, INDUCTION THERAPY
     Route: 065
  6. ETOPOSIDE [Suspect]
     Active Substance: ETOPOSIDE
     Dosage: UNK, CYCLE, CONSOLIDATION THERAPY
     Route: 065
  7. ETOPOSIDE [Suspect]
     Active Substance: ETOPOSIDE
     Dosage: UNK, CYCLE, METRONOMIC CHEMOTHERAPY
     Route: 065
  8. CISPLATIN [Suspect]
     Active Substance: CISPLATIN
     Indication: Malignant central nervous system neoplasm
     Dosage: UNK, CYCLE,INDUCTION THERAPY
     Route: 065
  9. METHOTREXATE [Suspect]
     Active Substance: METHOTREXATE
     Indication: Malignant central nervous system neoplasm
     Dosage: UNK, CYCLE, HIGH-DOSE; INDUCTION THERAPY
     Route: 065
  10. MESNA [Suspect]
     Active Substance: MESNA
     Indication: Malignant central nervous system neoplasm
     Dosage: UNK, CYCLE, INDUCTION THERAPY
     Route: 065
  11. LEUCOVORIN [Suspect]
     Active Substance: LEUCOVORIN
     Indication: Malignant central nervous system neoplasm
     Dosage: UNK, CYCLE, INDUCTION THERAPY
     Route: 065
  12. PROMETHAZINE [Interacting]
     Active Substance: PROMETHAZINE HYDROCHLORIDE
     Indication: Product used for unknown indication
     Dosage: UNK
     Route: 065
  13. CELECOXIB [Suspect]
     Active Substance: CELECOXIB
     Indication: Malignant central nervous system neoplasm
     Dosage: UNK, CYCLE, METRONOMIC CHEMOTHERAPY
     Route: 065
  14. FENOFIBRATE [Suspect]
     Active Substance: FENOFIBRATE
     Indication: Malignant central nervous system neoplasm
     Dosage: UNK, CYCLE, METRONOMIC CHEMOTHERAPY
     Route: 065
  15. VINCRISTINE [Suspect]
     Active Substance: VINCRISTINE
     Indication: Malignant central nervous system neoplasm
     Dosage: UNK , CYCLE, INDUCTION THERAPY
     Route: 065
  16. MANNITOL [Suspect]
     Active Substance: MANNITOL
     Indication: Malignant central nervous system neoplasm
     Dosage: UNK , CYCLE,INDUCTION THERAPY
     Route: 065
  17. THIOTEPA [Suspect]
     Active Substance: THIOTEPA
     Indication: Malignant central nervous system neoplasm
     Dosage: UNK , CYCLE, CONSOLIDATION THERAPY
     Route: 065
  18. HYDROXYZINE [Interacting]
     Active Substance: HYDROXYZINE HYDROCHLORIDE
     Indication: Product used for unknown indication
     Dosage: UNK
     Route: 065
  19. CYCLOPHOSPHAMIDE [Suspect]
     Active Substance: CYCLOPHOSPHAMIDE
     Indication: Malignant central nervous system neoplasm
     Dosage: UNK , CYCLE,INDUCTION THERAPY
     Route: 065
  20. CYCLOPHOSPHAMIDE [Suspect]
     Active Substance: CYCLOPHOSPHAMIDE
     Dosage: UNK , CYCLE, METRONOMIC CHEMOTHERAPY
     Route: 065
  21. THALIDOMIDE [Suspect]
     Active Substance: THALIDOMIDE
     Indication: Malignant central nervous system neoplasm
     Dosage: UNK , CYCLE,METRONOMIC CHEMOTHERAPY
     Route: 065

REACTIONS (13)
  - Dehydration [Unknown]
  - Eating disorder [Recovered/Resolved]
  - Colitis [Recovered/Resolved]
  - Enterobacter bacteraemia [Recovered/Resolved]
  - Klebsiella bacteraemia [Recovered/Resolved]
  - Clostridium difficile colitis [Unknown]
  - Electrolyte imbalance [Unknown]
  - Engraftment syndrome [Unknown]
  - Drug interaction [Unknown]
  - Dystonia [Recovered/Resolved]
  - Off label use [Unknown]
  - Mucosal inflammation [Recovered/Resolved]
  - Nausea [Recovered/Resolved]
